FAERS Safety Report 10026041 (Version 2)
Quarter: 2014Q1

REPORT INFORMATION
  Report Type: Spontaneous
  Country: AU (occurrence: AU)
  Receive Date: 20140320
  Receipt Date: 20140320
  Transmission Date: 20141002
  Serious: No
  Sender: FDA-Public Use
  Company Number: AU-009507513-1402AUS000209

PATIENT
  Age: 73 Year
  Sex: Female

DRUGS (1)
  1. SAFLUTAN [Suspect]
     Route: 047

REACTIONS (2)
  - Cystoid macular oedema [Recovered/Resolved]
  - Vision blurred [Recovered/Resolved]
